FAERS Safety Report 4908539-7 (Version None)
Quarter: 2006Q1

REPORT INFORMATION
  Report Type: 
  Country: None (occurrence: None)
  Receive Date: 20060210
  Receipt Date: 20050822
  Transmission Date: 20060701
  Serious: No
  Sender: FDA-Public Use
  Company Number: US-GLAXOSMITHKLINE-A0571242A

PATIENT
  Age: 57 Year
  Sex: Male

DRUGS (2)
  1. PAXIL CR [Suspect]
     Indication: OBSESSIVE-COMPULSIVE DISORDER
     Dosage: 62.5MG PER DAY
     Route: 048
     Dates: start: 20030101, end: 20050101
  2. NO CONCURRENT MEDICATION [Concomitant]

REACTIONS (2)
  - ANORGASMIA [None]
  - LIBIDO DECREASED [None]
